FAERS Safety Report 7134548-6 (Version None)
Quarter: 2010Q4

REPORT INFORMATION
  Report Type: 
  Country: None (occurrence: None)
  Receive Date: 20101203
  Receipt Date: 20101125
  Transmission Date: 20110411
  Serious: Yes (Other)
  Sender: FDA-Public Use
  Company Number: MX-SANOFI-AVENTIS-2010SA070805

PATIENT
  Age: 56 Year
  Sex: Female
  Weight: 170 kg

DRUGS (8)
  1. SOLOSTAR [Suspect]
     Dates: start: 20101108, end: 20101118
  2. APIDRA SOLOSTAR [Suspect]
     Indication: TYPE 2 DIABETES MELLITUS
     Route: 058
     Dates: start: 20101108, end: 20101118
  3. SOLOSTAR [Suspect]
     Dates: start: 20101119
  4. LANTUS [Suspect]
     Indication: TYPE 2 DIABETES MELLITUS
     Route: 058
     Dates: start: 20101119
  5. METFORMIN [Suspect]
     Indication: TYPE 2 DIABETES MELLITUS
     Route: 048
     Dates: start: 20080101
  6. GLYBURIDE [Concomitant]
     Indication: TYPE 2 DIABETES MELLITUS
     Route: 048
     Dates: start: 20080101
  7. CARBAMAZEPINE [Concomitant]
     Indication: DIABETIC NEUROPATHY
     Route: 048
     Dates: start: 20070101
  8. CAPTOPRIL [Concomitant]
     Route: 048
     Dates: start: 19810101

REACTIONS (1)
  - WRONG DRUG ADMINISTERED [None]
